FAERS Safety Report 9239672 (Version 6)
Quarter: 2014Q1

REPORT INFORMATION
  Report Type: Spontaneous
  Country: US (occurrence: US)
  Receive Date: 20130418
  Receipt Date: 20140102
  Transmission Date: 20141002
  Serious: Yes (Death, Hospitalization, Other)
  Sender: FDA-Public Use
  Company Number: US-009507513-1304USA006782

PATIENT
  Sex: Female
  Weight: 48.98 kg

DRUGS (10)
  1. FOSAMAX [Suspect]
     Indication: OSTEOPOROSIS
     Dosage: 70 MG, UNK
     Route: 048
     Dates: start: 20020122, end: 20080501
  2. FOSAMAX [Suspect]
     Dosage: UNK
  3. CALCIUM (UNSPECIFIED) [Concomitant]
     Dosage: 600 MG, BID
     Dates: start: 2000, end: 2012
  4. VITAMINS (UNSPECIFIED) [Concomitant]
     Dosage: 1 DF, QD
     Dates: start: 2000, end: 2012
  5. ACCUPRIL [Concomitant]
     Indication: HYPERTENSION
     Dosage: UNK
     Dates: start: 2001, end: 2012
  6. LEVOTHYROXINE SODIUM [Concomitant]
     Indication: HYPOTHYROIDISM
     Dosage: UNK
     Dates: start: 1995, end: 2012
  7. ATENOLOL [Concomitant]
     Indication: HYPERTENSION
     Dosage: UNK
     Dates: start: 2001, end: 2012
  8. LIPITOR [Concomitant]
     Indication: BLOOD CHOLESTEROL INCREASED
     Dosage: UNK
     Dates: start: 2001, end: 2012
  9. ALENDRONATE SODIUM [Suspect]
     Indication: OSTEOPOROSIS
     Dosage: 70 MG, UNK
     Route: 048
     Dates: start: 20080411, end: 20100101
  10. ALENDRONATE SODIUM [Suspect]
     Dosage: 70 UNK, UNK
     Route: 048
     Dates: end: 20100825

REACTIONS (35)
  - Intramedullary rod insertion [Unknown]
  - Anaemia of chronic disease [Unknown]
  - Death [Fatal]
  - Fall [Unknown]
  - Intramedullary rod insertion [Unknown]
  - Haematocrit decreased [Unknown]
  - Transfusion [Unknown]
  - Fractured sacrum [Unknown]
  - Pelvic fracture [Unknown]
  - Pubis fracture [Unknown]
  - Hyponatraemia [Unknown]
  - Femur fracture [Unknown]
  - Femur fracture [Unknown]
  - Impaired healing [Recovered/Resolved]
  - Low turnover osteopathy [Unknown]
  - Pelvic fracture [Unknown]
  - Wrist fracture [Unknown]
  - Asthma [Unknown]
  - Glaucoma [Unknown]
  - Coronary artery disease [Unknown]
  - Bradycardia [Unknown]
  - Urinary tract infection [Unknown]
  - Rotator cuff syndrome [Unknown]
  - Peripheral vascular disorder [Unknown]
  - Peptic ulcer [Unknown]
  - Hyperlipidaemia [Unknown]
  - Intervertebral disc degeneration [Unknown]
  - Compression fracture [Unknown]
  - Pain [Unknown]
  - Gastrointestinal haemorrhage [Unknown]
  - Serum ferritin decreased [Unknown]
  - Insomnia [Unknown]
  - Neck pain [Unknown]
  - Musculoskeletal discomfort [Unknown]
  - Gastrooesophageal reflux disease [Unknown]
